FAERS Safety Report 15434205 (Version 1)
Quarter: 2018Q3

REPORT INFORMATION
  Report Type: Report from Study
  Country: DE (occurrence: DE)
  Receive Date: 20180927
  Receipt Date: 20180927
  Transmission Date: 20181010
  Serious: Yes (Hospitalization)
  Sender: FDA-Public Use
  Company Number: DE-CELGENEUS-062-10004-09011224

PATIENT
  Age: 57 Year
  Sex: Female
  Weight: 91.4 kg

DRUGS (12)
  1. CC?10004 [Suspect]
     Active Substance: APREMILAST
     Dosage: 40 MILLIGRAM
     Route: 048
     Dates: start: 20081201, end: 20090203
  2. CODEIN [Concomitant]
     Active Substance: CODEINE
     Indication: COUGH
     Dosage: 20 DROPS
     Route: 048
     Dates: start: 20080112
  3. AMEIN [Concomitant]
     Indication: PSORIASIS
     Dosage: 1500 MILLIGRAM
     Route: 048
     Dates: start: 200012
  4. PANTOZOL [Concomitant]
     Active Substance: PANTOPRAZOLE SODIUM
     Indication: ABDOMINAL PAIN UPPER
     Dosage: 80 MILLIGRAM
     Route: 048
     Dates: start: 20081222
  5. PARACETAMOL [Concomitant]
     Active Substance: ACETAMINOPHEN
     Indication: PRODUCT USED FOR UNKNOWN INDICATION
     Dosage: 1500 MILLIGRAM
     Route: 048
     Dates: start: 20090120
  6. ACC [Concomitant]
     Active Substance: ACETYLCYSTEINE
     Indication: COUGH
     Dosage: 600 MILLIGRAM
     Route: 065
     Dates: start: 20090114
  7. CC?10004 [Suspect]
     Active Substance: APREMILAST
     Indication: PSORIATIC ARTHROPATHY
     Dosage: 40 MILLIGRAM
     Route: 048
     Dates: start: 20080905, end: 20081130
  8. OXAL EYE DROPS [Concomitant]
     Indication: CATARACT
     Dosage: 1 DROP BOTH EYE
     Route: 065
     Dates: start: 1996
  9. PANTOZOL [Concomitant]
     Active Substance: PANTOPRAZOLE SODIUM
     Dosage: 40 MILLIGRAM
     Route: 065
  10. BROMHEXIN [Concomitant]
     Active Substance: BROMHEXINE
     Indication: COUGH
     Dosage: 90 DROPS
     Route: 048
     Dates: start: 20090114
  11. CLINDAMYCIN. [Concomitant]
     Active Substance: CLINDAMYCIN
     Indication: WOUND INFECTION
     Route: 065
     Dates: end: 20090119
  12. CLINDAMYCIN. [Concomitant]
     Active Substance: CLINDAMYCIN
     Dosage: 900 MILLIGRAM
     Route: 048
     Dates: start: 20090123

REACTIONS (2)
  - Abdominal abscess [Recovered/Resolved]
  - Wound infection [Recovered/Resolved]

NARRATIVE: CASE EVENT DATE: 20090119
